FAERS Safety Report 6612430-8 (Version None)
Quarter: 2010Q1

REPORT INFORMATION
  Report Type: 
  Country: None (occurrence: None)
  Receive Date: 20100303
  Receipt Date: 20100224
  Transmission Date: 20100710
  Serious: Yes (Hospitalization)
  Sender: FDA-Public Use
  Company Number: PHHO2010NL02981

PATIENT
  Sex: Male
  Weight: 75 kg

DRUGS (2)
  1. CGP 57148B T35717+ [Suspect]
     Indication: CHRONIC MYELOID LEUKAEMIA
     Dosage: 800MG DAILY
     Route: 048
     Dates: start: 20090728
  2. CYTARABINE [Concomitant]
     Dosage: 385MG
     Dates: start: 20090728

REACTIONS (2)
  - FEBRILE NEUTROPENIA [None]
  - TONSILLITIS [None]
